FAERS Safety Report 7564913-4 (Version None)
Quarter: 2011Q2

REPORT INFORMATION
  Report Type: 
  Country: None (occurrence: None)
  Receive Date: 20110622
  Receipt Date: 20110314
  Transmission Date: 20111010
  Serious: Yes (Death, Other)
  Sender: FDA-Public Use
  Company Number: US-MYLANLABS-2011S1003229

PATIENT
  Age: 82 Year
  Sex: Female

DRUGS (8)
  1. CLOZAPINE [Suspect]
     Route: 048
  2. LASIX [Concomitant]
  3. LORAZEPAM [Concomitant]
  4. CARBIDOPA + LEVODOPA [Concomitant]
     Dosage: CARBIDOPA, 25MG/LEVODOPA, 100MG
  5. VENLAFAXINE [Concomitant]
  6. CLOZAPINE [Suspect]
     Route: 048
  7. MORPHINE SULFATE [Concomitant]
  8. CALCIUM WITH VITAMIN D [Concomitant]

REACTIONS (1)
  - DEATH [None]
